FAERS Safety Report 8989733 (Version 1)
Quarter: 2012Q4

REPORT INFORMATION
  Report Type: 
  Country: AU (occurrence: AU)
  Receive Date: 20121228
  Receipt Date: 20121228
  Transmission Date: 20130627
  Serious: Yes (Hospitalization)
  Sender: FDA-Public Use
  Company Number: AU-JNJFOC-20121211300

PATIENT
  Age: 80 Year
  Sex: Male
  Weight: 40 kg

DRUGS (11)
  1. PARACETAMOL [Suspect]
     Route: 065
  2. PARACETAMOL [Suspect]
     Indication: PRODUCT USED FOR UNKNOWN INDICATION
     Route: 065
  3. PANTOPRAZOLE [Suspect]
     Indication: PRODUCT USED FOR UNKNOWN INDICATION
     Route: 065
  4. PYRAZINAMIDE [Suspect]
     Indication: TUBERCULOSIS
     Route: 065
  5. ISONIAZID [Suspect]
     Indication: TUBERCULOSIS
     Route: 065
  6. RIFAMPICIN [Suspect]
     Indication: TUBERCULOSIS
     Route: 065
  7. RIFAMPICIN [Suspect]
     Indication: TUBERCULOSIS
     Route: 065
  8. ETHAMBUTOL [Suspect]
     Indication: TUBERCULOSIS
     Route: 065
  9. AMIKACIN [Concomitant]
     Route: 065
  10. AMIKACIN [Concomitant]
     Route: 065
  11. MOXIFLOXACIN [Concomitant]
     Route: 065

REACTIONS (7)
  - Hepatotoxicity [Recovered/Resolved]
  - Blood bilirubin increased [None]
  - Gamma-glutamyltransferase increased [None]
  - Blood alkaline phosphatase increased [None]
  - Aspartate aminotransferase increased [None]
  - Alanine aminotransferase increased [None]
  - International normalised ratio increased [None]
